FAERS Safety Report 13917851 (Version 8)
Quarter: 2020Q2

REPORT INFORMATION
  Report Type: Spontaneous
  Country: US (occurrence: US)
  Receive Date: 20170829
  Receipt Date: 20200626
  Transmission Date: 20200713
  Serious: Yes (Other)
  Sender: FDA-Public Use
  Company Number: US-PFIZER INC-2017366939

PATIENT
  Age: 62 Year
  Sex: Male
  Weight: 71.66 kg

DRUGS (13)
  1. METHOTREXATE SODIUM. [Suspect]
     Active Substance: METHOTREXATE SODIUM
     Indication: ARTHRITIS
     Dosage: 20 MG, WEEKLY
  2. XELJANZ XR [Suspect]
     Active Substance: TOFACITINIB CITRATE
     Dosage: 11 MG
  3. ENBREL [Suspect]
     Active Substance: ETANERCEPT
     Indication: ARTHRITIS
     Dosage: 50 ML PER WEEK BY INJECTION IN THE THIGH
     Dates: end: 201803
  4. SULFASALAZINE. [Suspect]
     Active Substance: SULFASALAZINE
     Indication: INFLAMMATION
  5. FOLIC ACID. [Concomitant]
     Active Substance: FOLIC ACID
     Indication: INFLAMMATION
     Dosage: 2 MG, DAILY
     Dates: start: 1995
  6. METHOTREXATE SODIUM. [Suspect]
     Active Substance: METHOTREXATE SODIUM
     Indication: INFLAMMATION
  7. SULFASALAZINE. [Suspect]
     Active Substance: SULFASALAZINE
     Indication: ARTHRITIS
     Dosage: 2000 MG, DAILY (TWO 500MG TABLETS IN THE MORNING AND ANOTHER 2 ABOUT 12 HOURS LATER)
     Route: 048
     Dates: start: 1995, end: 201802
  8. XELJANZ [Suspect]
     Active Substance: TOFACITINIB CITRATE
     Dosage: 5 MG
  9. METHOTREXATE. [Suspect]
     Active Substance: METHOTREXATE
     Indication: INFLAMMATION
  10. FOLIC ACID. [Concomitant]
     Active Substance: FOLIC ACID
     Indication: ARTHRITIS
  11. ENBREL [Suspect]
     Active Substance: ETANERCEPT
     Indication: INFLAMMATION
  12. HUMIRA [Suspect]
     Active Substance: ADALIMUMAB
     Dosage: UNK
     Route: 058
  13. METHOTREXATE. [Suspect]
     Active Substance: METHOTREXATE
     Indication: ARTHRITIS
     Dosage: 20 MG, WEEKLY
     Route: 048
     Dates: start: 1995, end: 201802

REACTIONS (8)
  - Low density lipoprotein abnormal [Unknown]
  - Drug ineffective for unapproved indication [Unknown]
  - Product use in unapproved indication [Unknown]
  - Vertigo [Unknown]
  - Iritis [Unknown]
  - Eye disorder [Unknown]
  - Off label use [Unknown]
  - Inflammation [Unknown]
